FAERS Safety Report 7796922-4 (Version None)
Quarter: 2011Q4

REPORT INFORMATION
  Report Type: 
  Country: None (occurrence: None)
  Receive Date: 20111005
  Receipt Date: 20110928
  Transmission Date: 20120403
  Serious: Yes (Hospitalization)
  Sender: FDA-Public Use
  Company Number: GB-SANOFI-AVENTIS-2011SA049795

PATIENT
  Age: 73 Year
  Sex: Male
  Weight: 83.7 kg

DRUGS (14)
  1. CABAZITAXEL [Suspect]
     Indication: PROSTATE CANCER
     Route: 042
     Dates: start: 20110407, end: 20110407
  2. PREDNISONE [Suspect]
     Indication: PROSTATE CANCER
     Route: 048
     Dates: start: 20110407
  3. AMITRIPTYLINE HCL [Concomitant]
     Route: 048
  4. ACETAMINOPHEN [Concomitant]
  5. ALBUTEROL [Concomitant]
     Route: 055
  6. CIPROFLOXACIN [Concomitant]
     Route: 048
  7. RAMIPRIL [Concomitant]
     Route: 048
  8. BUMETANIDE [Concomitant]
     Route: 048
  9. IBUPROFEN [Concomitant]
     Route: 061
  10. ATENOLOL [Concomitant]
  11. METOCLOPRAMIDE [Concomitant]
     Route: 048
  12. CABAZITAXEL [Suspect]
     Route: 042
     Dates: start: 20110721, end: 20110721
  13. CODEINE [Concomitant]
     Route: 048
  14. LANSOPRAZOLE [Concomitant]
     Route: 048

REACTIONS (1)
  - PNEUMONIA [None]
